FAERS Safety Report 7292654-X (Version None)
Quarter: 2011Q1

REPORT INFORMATION
  Report Type: 
  Country: None (occurrence: None)
  Receive Date: 20110203
  Receipt Date: 20110118
  Transmission Date: 20110831
  Serious: Yes (Death)
  Sender: FDA-Public Use
  Company Number: B0694968A

PATIENT
  Age: 48 Year
  Sex: Male

DRUGS (4)
  1. CLOZAPINE [Suspect]
     Dosage: ORAL
     Route: 048
  2. LAMOTRIGINE [Suspect]
     Dosage: ORAL
     Route: 048
  3. BETA-BLOCKER (FORMULATION UNKNOWN) (BETA-BLOCKER) [Suspect]
     Dosage: ORAL
     Route: 048
  4. CITALOPRAM HYDROBROMIDE [Suspect]
     Dosage: ORAL
     Route: 048

REACTIONS (1)
  - COMPLETED SUICIDE [None]
